FAERS Safety Report 20052115 (Version 1)
Quarter: 2021Q4

REPORT INFORMATION
  Report Type: Spontaneous
  Country: US (occurrence: US)
  Receive Date: 20211110
  Receipt Date: 20211110
  Transmission Date: 20220303
  Serious: Yes (Hospitalization, Other)
  Sender: FDA-Public Use
  Company Number: US-CADILA HEALTHCARE LIMITED-US-ZYDUS-071196

PATIENT

DRUGS (1)
  1. BOSENTAN [Suspect]
     Active Substance: BOSENTAN
     Indication: Pulmonary arterial hypertension
     Dosage: 125 MILLIGRAM, BID
     Route: 048
     Dates: start: 20190613

REACTIONS (7)
  - Cardiac disorder [Unknown]
  - Pneumonia [Recovering/Resolving]
  - Hypoxia [Unknown]
  - Lung disorder [Unknown]
  - COVID-19 [Unknown]
  - Aspiration [Unknown]
  - Fatigue [None]

NARRATIVE: CASE EVENT DATE: 20211001
